FAERS Safety Report 6115462-1 (Version None)
Quarter: 2009Q1

REPORT INFORMATION
  Report Type: 
  Country: None (occurrence: None)
  Receive Date: 20090313
  Receipt Date: 20090305
  Transmission Date: 20090719
  Serious: Yes (Other)
  Sender: FDA-Public Use
  Company Number: US-AMGEN-QUU336861

PATIENT
  Sex: Female

DRUGS (2)
  1. NEULASTA [Suspect]
     Indication: CHEMOTHERAPY
     Route: 065
     Dates: start: 20090101
  2. ISOPHOSPHAMIDE [Concomitant]
     Dates: start: 20090112

REACTIONS (3)
  - NERVOUS SYSTEM DISORDER [None]
  - RASH [None]
  - VASCULITIS [None]
